FAERS Safety Report 9302695 (Version 5)
Quarter: 2013Q4

REPORT INFORMATION
  Report Type: Report from Study
  Country: CA (occurrence: CA)
  Receive Date: 20130522
  Receipt Date: 20131007
  Transmission Date: 20140711
  Serious: Yes (Death, Hospitalization)
  Sender: FDA-Public Use
  Company Number: PHHY2013CA049853

PATIENT
  Age: 78 Year
  Sex: Female

DRUGS (4)
  1. SANDOSTATIN LAR [Suspect]
     Indication: INTESTINAL OBSTRUCTION
     Dosage: 30 MG, EVERY 4 WEEKS
     Route: 030
     Dates: start: 20130226
  2. SANDOSTATIN LAR [Suspect]
     Dosage: 30 MG, QMO
     Route: 030
  3. SANDOSTATIN LAR [Suspect]
     Dosage: 30 MG, EVERY 4 WEEKS
     Route: 030
  4. OXYGEN [Concomitant]
     Dosage: 18 HOURS PER DAY
     Route: 045

REACTIONS (5)
  - Death [Fatal]
  - Nasopharyngitis [Unknown]
  - Fall [Unknown]
  - Skeletal injury [Unknown]
  - Blood pressure systolic increased [Unknown]
